FAERS Safety Report 25849675 (Version 1)
Quarter: 2025Q3

REPORT INFORMATION
  Report Type: Spontaneous
  Country: CO (occurrence: CO)
  Receive Date: 20250926
  Receipt Date: 20250926
  Transmission Date: 20251020
  Serious: Yes (Life-Threatening, Hospitalization, Other)
  Sender: UNICHEM
  Company Number: CO-UNICHEM LABORATORIES LIMITED-UNI-2025-CO-003279

PATIENT

DRUGS (1)
  1. TRAMADOL [Suspect]
     Active Substance: TRAMADOL
     Indication: Product used for unknown indication
     Route: 065

REACTIONS (18)
  - Craniocerebral injury [Unknown]
  - Intentional overdose [Unknown]
  - Toxic leukoencephalopathy [Unknown]
  - Epilepsy [Unknown]
  - Respiratory distress [Unknown]
  - Mobility decreased [Recovering/Resolving]
  - Ill-defined disorder [Recovering/Resolving]
  - Somnolence [Unknown]
  - Vomiting [Unknown]
  - Miosis [Unknown]
  - Aspiration [Unknown]
  - Rhabdomyolysis [Unknown]
  - Systemic infection [Unknown]
  - Pneumonitis [Unknown]
  - Acute kidney injury [Unknown]
  - Muscle atrophy [Unknown]
  - Quadriplegia [Unknown]
  - Dysphagia [Unknown]
